FAERS Safety Report 22643239 (Version 1)
Quarter: 2023Q2

REPORT INFORMATION
  Report Type: Spontaneous
  Country: UA (occurrence: UA)
  Receive Date: 20230627
  Receipt Date: 20230627
  Transmission Date: 20230721
  Serious: Yes (Other)
  Sender: FDA-Public Use
  Company Number: UA-SA-2023SA192601

PATIENT
  Age: 57 Year
  Sex: Male

DRUGS (3)
  1. OXALIPLATIN [Suspect]
     Active Substance: OXALIPLATIN
     Indication: Regional chemotherapy
     Dosage: UNK
     Route: 013
     Dates: start: 201703, end: 201807
  2. FLUOROURACIL [Suspect]
     Active Substance: FLUOROURACIL
     Indication: Regional chemotherapy
     Dosage: UNK
     Route: 013
     Dates: start: 2018, end: 201807
  3. LEUCOVORIN [Suspect]
     Active Substance: LEUCOVORIN
     Indication: Regional chemotherapy
     Dosage: UNK
     Route: 013
     Dates: start: 2018, end: 201807

REACTIONS (1)
  - Cardiotoxicity [Unknown]

NARRATIVE: CASE EVENT DATE: 20180101
